FAERS Safety Report 5287572-2 (Version None)
Quarter: 2007Q1

REPORT INFORMATION
  Report Type: 
  Country: None (occurrence: None)
  Receive Date: 20070126
  Receipt Date: 20060201
  Transmission Date: 20070707
  Serious: No
  Sender: FDA-Public Use
  Company Number: 2006OCT001101

PATIENT
  Age: 39 Year
  Sex: Female
  Weight: 46.7 kg

DRUGS (12)
  1. VENTAVIS [Suspect]
     Indication: PULMONARY HYPERTENSION
     Dosage: 2.5 UG; 6XD; INH
     Route: 055
     Dates: start: 20050607, end: 20060101
  2. ASPIRIN [Concomitant]
  3. CALCIUM CARBONATE [Concomitant]
  4. PROMETHAZINE [Concomitant]
  5. LORTAB [Concomitant]
  6. PANTOPRAZOLE [Concomitant]
  7. ALLOPURINOL [Concomitant]
  8. TYLENOL [Concomitant]
  9. ECONOPRED PLUS [Concomitant]
  10. LEVOXYL [Concomitant]
  11. DIGOXIN [Concomitant]
  12. SILDENAFIL CITRATE [Concomitant]

REACTIONS (6)
  - DIARRHOEA [None]
  - DRUG INEFFECTIVE [None]
  - HEADACHE [None]
  - PAIN IN JAW [None]
  - PHARYNGOLARYNGEAL PAIN [None]
  - TACHYCARDIA [None]
